FAERS Safety Report 10220449 (Version 2)
Quarter: 2014Q2

REPORT INFORMATION
  Report Type: Report from Study
  Country: US (occurrence: US)
  Receive Date: 20140606
  Receipt Date: 20140626
  Transmission Date: 20141212
  Serious: Yes (Other)
  Sender: FDA-Public Use
  Company Number: US-BIOGENIDEC-2014BI052753

PATIENT
  Sex: Female

DRUGS (2)
  1. TECFIDERA [Suspect]
     Indication: MULTIPLE SCLEROSIS
     Route: 048
     Dates: start: 20140221, end: 20140306
  2. AVONEX [Concomitant]
     Indication: MULTIPLE SCLEROSIS
     Route: 030
     Dates: start: 20030919

REACTIONS (4)
  - Diarrhoea [Recovered/Resolved]
  - Diarrhoea haemorrhagic [Recovered/Resolved]
  - Upper respiratory tract infection [Recovered/Resolved]
  - Urinary tract infection [Unknown]
